FAERS Safety Report 5178708-2 (Version None)
Quarter: 2006Q4

REPORT INFORMATION
  Report Type: 
  Country: None (occurrence: None)
  Receive Date: 20061218
  Receipt Date: 20060813
  Transmission Date: 20070319
  Serious: No
  Sender: FDA-Public Use
  Company Number: US-AMGEN-KDL189906

PATIENT
  Sex: Female

DRUGS (2)
  1. ENBREL [Suspect]
     Indication: PSORIATIC ARTHROPATHY
     Route: 058
     Dates: start: 20040301
  2. METHOTREXATE [Concomitant]
     Dates: start: 20040301

REACTIONS (4)
  - CONTUSION [None]
  - HYPERSENSITIVITY [None]
  - RASH PRURITIC [None]
  - SINUSITIS [None]
